FAERS Safety Report 6575189-9 (Version None)
Quarter: 2010Q1

REPORT INFORMATION
  Report Type: 
  Country: None (occurrence: None)
  Receive Date: 20100202
  Receipt Date: 20100121
  Transmission Date: 20100710
  Serious: Yes (Death, Disabling)
  Sender: FDA-Public Use
  Company Number: 2010AC000081

PATIENT

DRUGS (1)
  1. DIGOXIN [Suspect]

REACTIONS (5)
  - ANXIETY [None]
  - INJURY [None]
  - LIFE EXPECTANCY SHORTENED [None]
  - PAIN [None]
  - QUALITY OF LIFE DECREASED [None]
